FAERS Safety Report 8462443-9 (Version None)
Quarter: 2012Q2

REPORT INFORMATION
  Report Type: 
  Country: None (occurrence: None)
  Receive Date: 20120625
  Receipt Date: 20120618
  Transmission Date: 20120825
  Serious: Yes (Other)
  Sender: FDA-Public Use
  Company Number: US-PFIZER INC-2012147798

PATIENT
  Sex: Female
  Weight: 68.027 kg

DRUGS (2)
  1. PREMARIN [Concomitant]
     Dosage: UNK
  2. LYRICA [Suspect]
     Indication: FIBROMYALGIA
     Dosage: 150MG ORAL CAPSULE ONE IN THE MORNING AND TWO CAPSULES OF 150MG IN THE NIGHT
     Route: 048
     Dates: start: 20060101

REACTIONS (4)
  - PAIN [None]
  - APHAGIA [None]
  - MYALGIA [None]
  - NAUSEA [None]
